FAERS Safety Report 8298989-6 (Version None)
Quarter: 2012Q2

REPORT INFORMATION
  Report Type: 
  Country: None (occurrence: None)
  Receive Date: 20120419
  Receipt Date: 20120411
  Transmission Date: 20120825
  Serious: Yes (Life-Threatening)
  Sender: FDA-Public Use
  Company Number: CH-ROXANE LABORATORIES, INC.-2012-RO-01037RO

PATIENT
  Age: 58 Year
  Sex: Female

DRUGS (10)
  1. DOXIUM [Suspect]
  2. LEVOTHYROXINE SODIUM [Suspect]
  3. SIBUTRAMINE HYDROCHLORIDE MONOHYDRATE [Suspect]
  4. ADALIMUMAB [Suspect]
     Indication: RHEUMATOID ARTHRITIS
  5. CHOLECALCIFEROL [Suspect]
  6. CALCIUM CARBONATE [Suspect]
  7. ALENDRONATE SODIUM [Suspect]
  8. CHONDROITIN [Suspect]
  9. BIOTIN [Suspect]
  10. METHOTREXATE [Suspect]
     Indication: RHEUMATOID ARTHRITIS

REACTIONS (1)
  - MENINGITIS [None]
